FAERS Safety Report 8028751-0 (Version None)
Quarter: 2012Q1

REPORT INFORMATION
  Report Type: 
  Country: None (occurrence: None)
  Receive Date: 20120106
  Receipt Date: 20120104
  Transmission Date: 20120608
  Serious: Yes (Other)
  Sender: FDA-Public Use
  Company Number: GB-MERCK-1112GBR00043

PATIENT
  Sex: Female

DRUGS (7)
  1. MORPHINE SULFATE [Concomitant]
     Indication: PAIN
     Route: 065
  2. PREDNISOLONE [Concomitant]
     Indication: ASTHMA
     Route: 065
  3. PREGABALIN [Concomitant]
     Indication: PAIN
     Route: 065
  4. SINGULAIR [Suspect]
     Indication: ASTHMA
     Route: 048
  5. LANSOPRAZOLE [Concomitant]
     Indication: GASTROINTESTINAL DISORDER
     Route: 065
  6. RISEDRONATE SODIUM [Concomitant]
     Indication: OSTEOPOROSIS PROPHYLAXIS
     Route: 065
  7. ACETAMINOPHEN [Concomitant]
     Indication: PAIN
     Route: 065

REACTIONS (1)
  - GASTRIC DISORDER [None]
